FAERS Safety Report 7449853-3 (Version None)
Quarter: 2011Q2

REPORT INFORMATION
  Report Type: 
  Country: None (occurrence: None)
  Receive Date: 20110502
  Receipt Date: 20110420
  Transmission Date: 20111010
  Serious: Yes (Other)
  Sender: FDA-Public Use
  Company Number: US-BAYER-2011-034733

PATIENT
  Age: 17 Year
  Sex: Female

DRUGS (2)
  1. YAZ [Suspect]
  2. YAZ [Suspect]
     Dosage: UNK
     Dates: start: 20101101

REACTIONS (2)
  - HYPOTENSION [None]
  - SYNCOPE [None]
